FAERS Safety Report 25858769 (Version 2)
Quarter: 2025Q4

REPORT INFORMATION
  Report Type: Report from Study
  Country: EU (occurrence: EU)
  Receive Date: 20250929
  Receipt Date: 20251010
  Transmission Date: 20260117
  Serious: Yes (Hospitalization, Other)
  Sender: JOHNSON AND JOHNSON
  Company Number: EU-JNJFOC-20250931522

PATIENT
  Age: 77 Year
  Sex: Female
  Weight: 64 kg

DRUGS (5)
  1. AMIVANTAMAB [Suspect]
     Active Substance: AMIVANTAMAB
     Indication: Lung neoplasm malignant
     Route: 065
     Dates: start: 20250410, end: 20250827
  2. PEMETREXED [Suspect]
     Active Substance: PEMETREXED
  3. NORVASC [Concomitant]
     Active Substance: AMLODIPINE BESYLATE
     Indication: Hypertension
     Route: 048
  4. TAVOR (LORAZEPAM) [Concomitant]
     Active Substance: LORAZEPAM
     Indication: Anxiety
     Route: 048
  5. PANTOPRAZOLE [Concomitant]
     Active Substance: PANTOPRAZOLE
     Indication: Prophylaxis
     Route: 048

REACTIONS (2)
  - Febrile neutropenia [Recovered/Resolved]
  - Anaemia [Unknown]

NARRATIVE: CASE EVENT DATE: 20250905
